FAERS Safety Report 10032522 (Version 2)
Quarter: 2014Q1

REPORT INFORMATION
  Report Type: Spontaneous
  Country: US (occurrence: US)
  Receive Date: 20140324
  Receipt Date: 20140324
  Transmission Date: 20141002
  Serious: No
  Sender: FDA-Public Use
  Company Number: US-SHIONOGI, INC-2013000383

PATIENT
  Age: 55 Year
  Sex: Female
  Weight: 72.56 kg

DRUGS (2)
  1. OSPHENA [Suspect]
     Indication: ATROPHIC VULVOVAGINITIS
     Dosage: 60 MG, QD
     Route: 048
     Dates: start: 20130925, end: 20131204
  2. OSPHENA [Suspect]
     Indication: OFF LABEL USE

REACTIONS (2)
  - Vaginal haemorrhage [Recovered/Resolved]
  - Off label use [Unknown]
